FAERS Safety Report 7341217-6 (Version None)
Quarter: 2011Q1

REPORT INFORMATION
  Report Type: 
  Country: None (occurrence: None)
  Receive Date: 20110309
  Receipt Date: 20110303
  Transmission Date: 20110831
  Serious: Yes (Hospitalization)
  Sender: FDA-Public Use
  Company Number: US-BRISTOL-MYERS SQUIBB COMPANY-15574932

PATIENT
  Age: 67 Year
  Sex: Female

DRUGS (1)
  1. COUMADIN [Suspect]

REACTIONS (4)
  - INTERNATIONAL NORMALISED RATIO INCREASED [None]
  - GASTROINTESTINAL HAEMORRHAGE [None]
  - LARGE INTESTINAL ULCER [None]
  - ANAEMIA [None]
